FAERS Safety Report 4818945-7 (Version None)
Quarter: 2005Q4

REPORT INFORMATION
  Report Type: 
  Country: None (occurrence: None)
  Receive Date: 20051103
  Receipt Date: 20051026
  Transmission Date: 20060501
  Serious: Yes (Other)
  Sender: FDA-Public Use
  Company Number: US-SOLVAY-00205003595

PATIENT
  Age: 69 Year
  Sex: Female

DRUGS (1)
  1. PROMETRIUM [Suspect]
     Indication: PROGESTERONE DECREASED
     Dosage: DAILY DOSE:  UNKNOWN
     Route: 048

REACTIONS (1)
  - LEUKAEMIA [None]
